FAERS Safety Report 4825356-7 (Version None)
Quarter: 2005Q4

REPORT INFORMATION
  Report Type: 
  Country: None (occurrence: None)
  Receive Date: 20051111
  Receipt Date: 20051019
  Transmission Date: 20060501
  Serious: Yes (Other)
  Sender: FDA-Public Use
  Company Number: JP-ROCHE-422165

PATIENT
  Age: 63 Year
  Sex: Male

DRUGS (5)
  1. PEGASYS [Suspect]
     Route: 058
     Dates: start: 20050804, end: 20050804
  2. SUMIFERON DS [Suspect]
     Dosage: ROUTE: INJECTABLE (NOT OTHERWISE SPECIFIED) DOSE REPORTED AS 300 MU
     Route: 050
     Dates: start: 20050905, end: 20050914
  3. OZEX [Suspect]
     Indication: URINARY TRACT INFECTION
     Route: 048
     Dates: start: 20051015, end: 20051017
  4. CARBENIN [Concomitant]
     Route: 041
     Dates: start: 20051004, end: 20051017
  5. PRODIF [Concomitant]
     Route: 041
     Dates: start: 20051007, end: 20051017

REACTIONS (7)
  - BONE MARROW FAILURE [None]
  - DERMATITIS [None]
  - DIALYSIS [None]
  - FUNGAL INFECTION [None]
  - RENAL FAILURE ACUTE [None]
  - STOMATITIS [None]
  - URINARY TRACT INFECTION [None]
